FAERS Safety Report 12658576 (Version 3)
Quarter: 2016Q4

REPORT INFORMATION
  Report Type: Report from Study
  Country: US (occurrence: US)
  Receive Date: 20160817
  Receipt Date: 20161010
  Transmission Date: 20170207
  Serious: Yes (Other)
  Sender: FDA-Public Use
  Company Number: US-AMGEN-USASL2016099851

PATIENT
  Age: 71 Year
  Sex: Female
  Weight: 101.59 kg

DRUGS (3)
  1. REPATHA [Suspect]
     Active Substance: EVOLOCUMAB
     Indication: BLOOD CHOLESTEROL ABNORMAL
     Dosage: 140 MG, Q2WK
     Route: 058
     Dates: start: 20160308
  2. REPATHA [Suspect]
     Active Substance: EVOLOCUMAB
     Indication: HYPERLIPIDAEMIA
  3. REPATHA [Suspect]
     Active Substance: EVOLOCUMAB
     Indication: BLOOD CHOLESTEROL INCREASED

REACTIONS (6)
  - Diarrhoea [Unknown]
  - Gastrointestinal hypomotility [Recovered/Resolved]
  - Abnormal faeces [Unknown]
  - Vomiting [Unknown]
  - Gastrointestinal tract irritation [Unknown]
  - Fungal infection [Unknown]

NARRATIVE: CASE EVENT DATE: 20160803
